FAERS Safety Report 7198062-4 (Version None)
Quarter: 2010Q4

REPORT INFORMATION
  Report Type: 
  Country: None (occurrence: None)
  Receive Date: 20101213
  Receipt Date: 20101128
  Transmission Date: 20110411
  Serious: Yes (Other)
  Sender: FDA-Public Use
  Company Number: GB-DEXPHARM-20101933

PATIENT
  Sex: Female

DRUGS (1)
  1. OMEPRAZOLE [Suspect]

REACTIONS (1)
  - TUBULOINTERSTITIAL NEPHRITIS [None]
